FAERS Safety Report 10736262 (Version 1)
Quarter: 2015Q1

REPORT INFORMATION
  Report Type: Spontaneous
  Country: US (occurrence: None)
  Receive Date: 20150122
  Receipt Date: 20150122
  Transmission Date: 20150721
  Serious: Yes (Hospitalization)
  Sender: FDA-Public Use
  Company Number: None

PATIENT
  Age: 68 Year
  Sex: Male
  Weight: 84.73 kg

DRUGS (2)
  1. RITUXIMAB (MOAB C2B8 ANTI CD20, CHIMERIC) [Suspect]
     Active Substance: RITUXIMAB
     Dates: start: 20141119
  2. LENALIDOMIDE [Suspect]
     Active Substance: LENALIDOMIDE
     Dates: end: 20141209

REACTIONS (7)
  - Pain in extremity [None]
  - Fatigue [None]
  - Sputum discoloured [None]
  - Productive cough [None]
  - Deep vein thrombosis [None]
  - Dyspnoea [None]
  - Presyncope [None]

NARRATIVE: CASE EVENT DATE: 20141214
